FAERS Safety Report 13791145 (Version 1)
Quarter: 2017Q3

REPORT INFORMATION
  Report Type: Spontaneous
  Country: GB (occurrence: GB)
  Receive Date: 20170725
  Receipt Date: 20170725
  Transmission Date: 20171127
  Serious: Yes (Other)
  Sender: FDA-Public Use
  Company Number: GB-MYLANLABS-2017M1042971

PATIENT

DRUGS (6)
  1. DESOGESTREL [Concomitant]
     Active Substance: DESOGESTREL
  2. PREDNISOLON                        /00016201/ [Concomitant]
     Active Substance: PREDNISOLONE
  3. SALBUTAMOL [Concomitant]
     Active Substance: ALBUTEROL
  4. VENLALIC [Concomitant]
     Active Substance: VENLAFAXINE HYDROCHLORIDE
  5. CLARITHROMYCIN. [Suspect]
     Active Substance: CLARITHROMYCIN
     Indication: LOWER RESPIRATORY TRACT INFECTION
     Route: 048
     Dates: start: 20170627, end: 20170628
  6. AMOXICILLIN. [Concomitant]
     Active Substance: AMOXICILLIN

REACTIONS (4)
  - Palpitations [Recovering/Resolving]
  - Heart rate increased [Recovering/Resolving]
  - Dysgeusia [Recovering/Resolving]
  - Contraindicated drug prescribed [Unknown]

NARRATIVE: CASE EVENT DATE: 20170627
